FAERS Safety Report 4310154-3 (Version None)
Quarter: 2004Q1

REPORT INFORMATION
  Report Type: 
  Country: None (occurrence: None)
  Receive Date: 20040302
  Receipt Date: 20040302
  Transmission Date: 20041129
  Serious: Yes (Hospitalization)
  Sender: FDA-Public Use
  Company Number: None

PATIENT
  Age: 49 Year
  Sex: Female

DRUGS (1)
  1. GAMMAGARD [Suspect]
     Indication: PEMPHIGUS

REACTIONS (1)
  - ACUTE MYOCARDIAL INFARCTION [None]
